FAERS Safety Report 6737685-0 (Version None)
Quarter: 2010Q2

REPORT INFORMATION
  Report Type: 
  Country: None (occurrence: None)
  Receive Date: 20100524
  Receipt Date: 20100511
  Transmission Date: 20101027
  Serious: Yes (Other)
  Sender: FDA-Public Use
  Company Number: PHHY2010TR32017

PATIENT
  Age: 24 Year
  Sex: Female

DRUGS (10)
  1. ESTRADERM [Suspect]
     Dosage: 100 MCG
     Route: 062
  2. ESTRADIOL VALERATE [Suspect]
  3. PROGESTERONE [Concomitant]
     Dosage: 90 MG DAILY
     Route: 067
  4. METRONIDAZOL ^ALPHARMA^ [Concomitant]
     Dosage: 500 MG
  5. DOXYCYCLINE [Concomitant]
     Dosage: 200 MG
  6. CHORIONIC GONADOTROPIN [Concomitant]
  7. FOLLICLE STIMULATING HORMONE, RECOMBINANT [Concomitant]
     Dosage: 150 IU
  8. FOLLICLE STIMULATING HORMONE, RECOMBINANT [Concomitant]
     Dosage: 225 IU
  9. LEUPROLIDE ACETATE [Concomitant]
     Indication: OVARIAN DISORDER
     Dosage: 1 MG DAILY
  10. LEUPROLIDE ACETATE [Concomitant]
     Dosage: 0.5 MG

REACTIONS (4)
  - CAESAREAN SECTION [None]
  - DRUG EXPOSURE DURING PREGNANCY [None]
  - PRE-ECLAMPSIA [None]
  - PREMATURE LABOUR [None]
